APPROVED DRUG PRODUCT: CLOTRIMAZOLE
Active Ingredient: CLOTRIMAZOLE
Strength: 1%
Dosage Form/Route: CREAM;TOPICAL
Application: A072640 | Product #001 | TE Code: AB
Applicant: SUN PHARMA CANADA INC
Approved: Aug 31, 1993 | RLD: No | RS: Yes | Type: RX